FAERS Safety Report 21507297 (Version 2)
Quarter: 2022Q4

REPORT INFORMATION
  Report Type: Report from Study
  Country: IT (occurrence: IT)
  Receive Date: 20221026
  Receipt Date: 20221115
  Transmission Date: 20230113
  Serious: Yes (Hospitalization, Other)
  Sender: FDA-Public Use
  Company Number: IT-GLAXOSMITHKLINE-IT2022GSK152793

PATIENT

DRUGS (1)
  1. DOSTARLIMAB [Suspect]
     Active Substance: DOSTARLIMAB
     Indication: Endometrial neoplasm
     Dosage: UNK
     Route: 042
     Dates: start: 20220414, end: 20220707

REACTIONS (1)
  - Malignant neoplasm progression [Recovered/Resolved]
